FAERS Safety Report 5165374-5 (Version None)
Quarter: 2006Q4

REPORT INFORMATION
  Report Type: 
  Country: None (occurrence: None)
  Receive Date: 20061206
  Receipt Date: 20061124
  Transmission Date: 20070319
  Serious: Yes (Hospitalization)
  Sender: FDA-Public Use
  Company Number: PHRM2006FR03146

PATIENT
  Age: 79 Year
  Sex: Female
  Weight: 41 kg

DRUGS (5)
  1. LEPONEX [Suspect]
     Dosage: 25 MG / D
     Route: 048
  2. LEPONEX [Suspect]
     Dosage: 25 MG, TID
     Route: 048
  3. ARICEPT [Concomitant]
  4. MODOPAR [Concomitant]
     Indication: PARKINSON'S DISEASE
  5. STABLON [Concomitant]

REACTIONS (5)
  - ASTHENIA [None]
  - COGWHEEL RIGIDITY [None]
  - CONDITION AGGRAVATED [None]
  - GENERAL PHYSICAL HEALTH DETERIORATION [None]
  - PARKINSON'S DISEASE [None]
